FAERS Safety Report 18817401 (Version 1)
Quarter: 2021Q1

REPORT INFORMATION
  Report Type: Spontaneous
  Country: AT (occurrence: AT)
  Receive Date: 20210201
  Receipt Date: 20210201
  Transmission Date: 20210419
  Serious: Yes (Other)
  Sender: FDA-Public Use
  Company Number: AT-TEVA-2021-AT-1873635

PATIENT
  Age: 23 Year
  Sex: Female

DRUGS (1)
  1. DOXYBENE 100 MG ? LOSBARE TABLETTEN [Suspect]
     Active Substance: DOXYCYCLINE
     Dosage: P.O.
     Route: 048
     Dates: start: 20200101, end: 20200103

REACTIONS (3)
  - Rash [Recovered/Resolved]
  - Pruritus [Recovered/Resolved]
  - Type I hypersensitivity [Recovered/Resolved]

NARRATIVE: CASE EVENT DATE: 20200101
